FAERS Safety Report 6260608-8 (Version None)
Quarter: 2009Q3

REPORT INFORMATION
  Report Type: 
  Country: None (occurrence: None)
  Receive Date: 20090708
  Receipt Date: 20090701
  Transmission Date: 20100115
  Serious: Yes (Other)
  Sender: FDA-Public Use
  Company Number: GB-ABBOTT-09P-167-0580052-00

PATIENT
  Sex: Female

DRUGS (1)
  1. EPILIM SYRUP [Suspect]
     Indication: EPILEPSY
     Route: 048
     Dates: start: 20090201, end: 20090501

REACTIONS (2)
  - DRUG WITHDRAWAL CONVULSIONS [None]
  - TREATMENT NONCOMPLIANCE [None]
